FAERS Safety Report 9293550 (Version 1)
Quarter: 2013Q2

REPORT INFORMATION
  Report Type: Spontaneous
  Country: IT (occurrence: IT)
  Receive Date: 20130516
  Receipt Date: 20130516
  Transmission Date: 20140414
  Serious: Yes (Other)
  Sender: FDA-Public Use
  Company Number: IT-ABBOTT-13X-083-1089933-00

PATIENT
  Age: 3 Year
  Sex: Male

DRUGS (2)
  1. DEPAKIN [Suspect]
     Indication: EPILEPSY
     Dosage: 100 DROPS (S); DAILY
     Route: 048
  2. DEPAKIN [Suspect]
     Route: 048
     Dates: start: 20130502, end: 20130502

REACTIONS (2)
  - Incorrect dose administered [Unknown]
  - Agitation [Recovered/Resolved]
